FAERS Safety Report 5481528-2 (Version None)
Quarter: 2007Q4

REPORT INFORMATION
  Report Type: 
  Country: None (occurrence: None)
  Receive Date: 20071010
  Receipt Date: 20071003
  Transmission Date: 20080405
  Serious: Yes (Hospitalization)
  Sender: FDA-Public Use
  Company Number: CA-AVENTIS-200719206GDDC

PATIENT
  Age: 23 Year
  Sex: Female

DRUGS (1)
  1. LANTUS [Suspect]
     Route: 058

REACTIONS (2)
  - DRUG EXPOSURE DURING PREGNANCY [None]
  - KETOACIDOSIS [None]
